FAERS Safety Report 16852132 (Version 5)
Quarter: 2021Q4

REPORT INFORMATION
  Report Type: Spontaneous
  Country: US (occurrence: US)
  Receive Date: 20190925
  Receipt Date: 20211115
  Transmission Date: 20220303
  Serious: No
  Sender: FDA-Public Use
  Company Number: US-PFIZER INC-2019411308

PATIENT
  Age: 59 Year
  Sex: Female
  Weight: 60.771 kg

DRUGS (2)
  1. EUCRISA [Suspect]
     Active Substance: CRISABOROLE
     Indication: Eczema
     Dosage: UNK UNK, 1X/DAY
     Route: 061
     Dates: start: 201908
  2. EUCRISA [Suspect]
     Active Substance: CRISABOROLE
     Indication: Dermatitis atopic
     Dosage: UNK UNK, 2X/DAY
     Route: 061

REACTIONS (9)
  - Off label use [Unknown]
  - Drug ineffective [Unknown]
  - Application site erythema [Unknown]
  - Application site pruritus [Unknown]
  - Burning sensation [Unknown]
  - Dermatitis atopic [Unknown]
  - Condition aggravated [Unknown]
  - Application site pain [Unknown]
  - Dermatitis atopic [Unknown]
